FAERS Safety Report 21124387 (Version 3)
Quarter: 2022Q4

REPORT INFORMATION
  Report Type: Spontaneous
  Country: IT (occurrence: IT)
  Receive Date: 20220725
  Receipt Date: 20221018
  Transmission Date: 20230113
  Serious: Yes (Other)
  Sender: FDA-Public Use
  Company Number: IT-CELLTRION INC.-2022IT004618

PATIENT

DRUGS (4)
  1. INFLIXIMAB [Suspect]
     Active Substance: INFLIXIMAB
     Indication: Crohn^s disease
     Dosage: UNK
     Route: 065
  2. ADALIMUMAB [Suspect]
     Active Substance: ADALIMUMAB
     Indication: Crohn^s disease
     Dosage: UNK
     Route: 065
  3. VEDOLIZUMAB [Suspect]
     Active Substance: VEDOLIZUMAB
     Indication: Crohn^s disease
     Dosage: UNK
     Route: 065
  4. USTEKINUMAB [Concomitant]
     Active Substance: USTEKINUMAB
     Indication: Crohn^s disease
     Dosage: UNK
     Route: 065

REACTIONS (6)
  - Crohn^s disease [Recovering/Resolving]
  - Enthesophyte [Not Recovered/Not Resolved]
  - Enthesopathy [Recovered/Resolved]
  - Tendonitis [Not Recovered/Not Resolved]
  - Therapy non-responder [Unknown]
  - Treatment failure [Unknown]
